FAERS Safety Report 14165059 (Version 2)
Quarter: 2018Q1

REPORT INFORMATION
  Report Type: Spontaneous
  Country: GB (occurrence: GB)
  Receive Date: 20171107
  Receipt Date: 20180313
  Transmission Date: 20180508
  Serious: Yes (Death, Hospitalization)
  Sender: FDA-Public Use
  Company Number: GB-PFIZER INC-2017476692

PATIENT
  Age: 24 Year
  Sex: Female

DRUGS (1)
  1. PREGABALIN. [Suspect]
     Active Substance: PREGABALIN
     Dosage: UNK

REACTIONS (9)
  - Brain hypoxia [Fatal]
  - Overdose [Unknown]
  - Vomiting [Unknown]
  - Multiple organ dysfunction syndrome [Fatal]
  - Malaise [Unknown]
  - Cardiac arrest [Unknown]
  - Loss of consciousness [Unknown]
  - Brain injury [Fatal]
  - Drug abuse [Unknown]

NARRATIVE: CASE EVENT DATE: 201611
